FAERS Safety Report 11059398 (Version 2)
Quarter: 2015Q2

REPORT INFORMATION
  Report Type: Spontaneous
  Country: JP (occurrence: JP)
  Receive Date: 20150423
  Receipt Date: 20150428
  Transmission Date: 20150821
  Serious: Yes (Other)
  Sender: FDA-Public Use
  Company Number: JP-SA-2015SA000933

PATIENT
  Sex: Male

DRUGS (4)
  1. APIDRA SOLOSTAR [Suspect]
     Active Substance: INSULIN GLULISINE
     Indication: DIABETES MELLITUS
     Dosage: DOSE: 16-16-18 UNITS DOSE:50 UNIT(S)
     Route: 058
     Dates: start: 20141201
  2. LANTUS [Suspect]
     Active Substance: INSULIN GLARGINE
     Indication: DIABETES MELLITUS
     Dosage: BEFORE DINNER DOSE:10 UNIT(S)
     Route: 058
  3. NOVORAPID [Concomitant]
     Active Substance: INSULIN ASPART
     Dates: start: 201402, end: 201412
  4. SOLOSTAR [Concomitant]
     Active Substance: DEVICE
     Dates: start: 20141201

REACTIONS (9)
  - Hypoglycaemia [Unknown]
  - Renal impairment [Unknown]
  - Injection site bruising [Unknown]
  - Blood glucose decreased [Unknown]
  - Thirst [Unknown]
  - Eczema [Unknown]
  - Pruritus [Unknown]
  - Purpura [Unknown]
  - Dyspnoea [Unknown]
